FAERS Safety Report 14466231 (Version 2)
Quarter: 2018Q1

REPORT INFORMATION
  Report Type: Spontaneous
  Country: JP (occurrence: JP)
  Receive Date: 20180131
  Receipt Date: 20180309
  Transmission Date: 20180509
  Serious: Yes (Life-Threatening, Hospitalization, Other)
  Sender: FDA-Public Use
  Company Number: JP-CIPLA LTD.-2018JP02531

PATIENT

DRUGS (3)
  1. RISPERIDONE. [Suspect]
     Active Substance: RISPERIDONE
     Indication: PRODUCT USED FOR UNKNOWN INDICATION
     Dosage: 11346 MG, IN TOTAL
     Route: 065
  2. FLUNITRAZEPAM [Suspect]
     Active Substance: FLUNITRAZEPAM
     Indication: PRODUCT USED FOR UNKNOWN INDICATION
     Dosage: 1250 MG, IN TOTAL
     Route: 065
  3. ASPIRIN. [Suspect]
     Active Substance: ASPIRIN
     Indication: PRODUCT USED FOR UNKNOWN INDICATION
     Dosage: 160 TABLETS OF, ASPIRIN (52.8 G) ; IN TOTAL
     Route: 065

REACTIONS (7)
  - Coma scale abnormal [Recovering/Resolving]
  - Metabolic acidosis [Unknown]
  - Overdose [Unknown]
  - Cardiac arrest [Recovering/Resolving]
  - Respiratory alkalosis [Unknown]
  - Arrhythmia [Recovering/Resolving]
  - Respiratory depression [Recovering/Resolving]
